FAERS Safety Report 8874199 (Version 1)
Quarter: 2012Q4

REPORT INFORMATION
  Report Type: Report from Study
  Country: JP (occurrence: JP)
  Receive Date: 20121029
  Receipt Date: 20121029
  Transmission Date: 20130627
  Serious: Yes (Hospitalization)
  Sender: FDA-Public Use
  Company Number: JP-009507513-1210USA007389

PATIENT
  Age: 46 Year
  Sex: Female

DRUGS (18)
  1. PEG-INTRON [Suspect]
     Indication: HEPATITIS C
     Dosage: 100 Microgram, qw
     Route: 058
     Dates: start: 20120711, end: 20120919
  2. RIBAVIRIN [Suspect]
     Indication: HEPATITIS C
     Dosage: 600 mg, qd
     Route: 048
     Dates: start: 20120711, end: 20120926
  3. ASUNAPREVIR [Suspect]
     Indication: HEPATITIS C
     Dosage: 200 mg, qd
     Route: 048
     Dates: start: 20120215
  4. DACLATASVIR [Suspect]
     Indication: HEPATITIS C
     Dosage: 60 mg, qd
     Route: 048
     Dates: start: 20120215
  5. CLOMIPRAMINE HYDROCHLORIDE [Concomitant]
     Dosage: UNK
     Dates: start: 2004
  6. CLOBETASOL PROPIONATE [Concomitant]
     Dosage: UNK
     Dates: start: 20120905
  7. MILNACIPRAN [Concomitant]
     Dosage: UNK
     Dates: start: 201105
  8. ALPRAZOLAM [Concomitant]
     Dosage: UNK
     Dates: start: 2004
  9. FAMOTIDINE [Concomitant]
     Dosage: UNK
     Dates: start: 201105
  10. SENNA [Concomitant]
     Dosage: UNK
     Dates: start: 201105
  11. BROTIZOLAM [Concomitant]
     Dosage: UNK
     Dates: start: 201105
  12. CLONAZEPAM [Concomitant]
     Dosage: UNK
     Dates: start: 201105
  13. ZOLPIDEM TARTRATE [Concomitant]
     Dosage: UNK
     Dates: start: 2004
  14. DIAZEPAM [Concomitant]
     Dosage: UNK
     Dates: start: 2004
  15. MIRTAZAPINE [Concomitant]
     Dosage: UNK
     Dates: start: 20120607
  16. LOXOPROFEN SODIUM [Concomitant]
     Dosage: UNK
     Dates: start: 20120711
  17. TEPRENONE [Concomitant]
     Dosage: UNK
     Dates: start: 20120620
  18. DIPHENHYDRAMINE HYDROCHLORIDE [Concomitant]
     Dosage: UNK
     Dates: start: 20120801

REACTIONS (1)
  - Pyelonephritis [Recovered/Resolved]
